FAERS Safety Report 16995687 (Version 1)
Quarter: 2019Q4

REPORT INFORMATION
  Report Type: Spontaneous
  Country: US (occurrence: US)
  Receive Date: 20191105
  Receipt Date: 20191105
  Transmission Date: 20200122
  Serious: No
  Sender: FDA-Public Use
  Company Number: US-TEVA-2019-US-1131016

PATIENT
  Sex: Female

DRUGS (1)
  1. LIDOCAINE 5 % PATCH ACTAVIS [Suspect]
     Active Substance: LIDOCAINE
     Route: 062

REACTIONS (3)
  - Application site rash [Unknown]
  - Product adhesion issue [Unknown]
  - Product leakage [Unknown]
